FAERS Safety Report 24220180 (Version 1)
Quarter: 2024Q3

REPORT INFORMATION
  Report Type: Spontaneous
  Country: CN (occurrence: CN)
  Receive Date: 20240817
  Receipt Date: 20240817
  Transmission Date: 20241016
  Serious: Yes (Death)
  Sender: AMGEN
  Company Number: CN-AMGEN-CHNSP2024163347

PATIENT
  Age: 44 Year
  Sex: Male

DRUGS (5)
  1. FILGRASTIM [Suspect]
     Active Substance: FILGRASTIM
     Indication: Acute leukaemia
     Dosage: UNK
     Route: 065
  2. IDARUBICIN [Concomitant]
     Active Substance: IDARUBICIN
  3. CYTARABINE [Concomitant]
     Active Substance: CYTARABINE
  4. CYTARABINE [Concomitant]
     Active Substance: CYTARABINE
     Dosage: HIGH DOSE
  5. CLADRIBINE [Concomitant]
     Active Substance: CLADRIBINE

REACTIONS (2)
  - Death [Fatal]
  - Therapy non-responder [Unknown]
